FAERS Safety Report 13949850 (Version 5)
Quarter: 2017Q4

REPORT INFORMATION
  Report Type: Spontaneous
  Country: AR (occurrence: AR)
  Receive Date: 20170908
  Receipt Date: 20171108
  Transmission Date: 20180320
  Serious: Yes (Other)
  Sender: FDA-Public Use
  Company Number: PHHY2017AR130704

PATIENT
  Age: 45 Year
  Sex: Male

DRUGS (3)
  1. TRILEPTAL [Interacting]
     Active Substance: OXCARBAZEPINE
     Indication: EPILEPSY
     Dosage: 6 DF, QD (3600 MG QD)
     Route: 065
  2. TEGRETOL [Suspect]
     Active Substance: CARBAMAZEPINE
     Indication: EPILEPSY
     Dosage: UNK
     Route: 065
  3. CLONAZEPAM. [Concomitant]
     Active Substance: CLONAZEPAM
     Indication: PRODUCT USED FOR UNKNOWN INDICATION
     Route: 065

REACTIONS (12)
  - Dizziness [Unknown]
  - Obsessive thoughts [Unknown]
  - Petit mal epilepsy [Not Recovered/Not Resolved]
  - Epilepsy [Recovered/Resolved]
  - Nervousness [Unknown]
  - Vision blurred [Unknown]
  - Drug interaction [Unknown]
  - Seizure [Not Recovered/Not Resolved]
  - Anal incontinence [Unknown]
  - Urinary incontinence [Not Recovered/Not Resolved]
  - Malaise [Unknown]
  - Fall [Unknown]

NARRATIVE: CASE EVENT DATE: 201705
